FAERS Safety Report 21098214 (Version 1)
Quarter: 2022Q3

REPORT INFORMATION
  Report Type: Spontaneous
  Country: FR (occurrence: FR)
  Receive Date: 20220719
  Receipt Date: 20220719
  Transmission Date: 20221026
  Serious: Yes (Hospitalization, Other)
  Sender: FDA-Public Use
  Company Number: FR-GLAXOSMITHKLINE-FR2022EME100856

PATIENT
  Age: 76 Year
  Sex: Female

DRUGS (2)
  1. VALACYCLOVIR [Suspect]
     Active Substance: VALACYCLOVIR HYDROCHLORIDE
     Indication: Product used for unknown indication
     Dosage: 2 DOSAGE FORM (500 MILLIGRAM)
     Route: 065
  2. LEVOTHYROXINE [Concomitant]
     Active Substance: LEVOTHYROXINE
     Indication: Product used for unknown indication
     Dosage: UNK, DROPS
     Route: 065

REACTIONS (8)
  - Imperception [Unknown]
  - Vomiting [Unknown]
  - Amnesia [Unknown]
  - Fatigue [Unknown]
  - Dizziness [Unknown]
  - Crying [Unknown]
  - Gait disturbance [Unknown]
  - Confusional state [Unknown]

NARRATIVE: CASE EVENT DATE: 20220430
